FAERS Safety Report 12278912 (Version 7)
Quarter: 2019Q4

REPORT INFORMATION
  Report Type: Report from Study
  Country: US (occurrence: US)
  Receive Date: 20160418
  Receipt Date: 20191223
  Transmission Date: 20200122
  Serious: Yes (Other)
  Sender: FDA-Public Use
  Company Number: PHHY2015US098319

PATIENT
  Age: 65 Year
  Sex: Male

DRUGS (6)
  1. HYDROCODONE BITARTRATE AND ACETAMINOPHEN [Concomitant]
     Active Substance: ACETAMINOPHEN\HYDROCODONE BITARTRATE
     Indication: ABDOMINAL PAIN
     Dosage: UNK
     Route: 065
     Dates: start: 20150114, end: 20150118
  2. IBUPROFEN. [Concomitant]
     Active Substance: IBUPROFEN
     Indication: ABDOMINAL PAIN
     Dosage: 600 MG, PRN
     Route: 065
     Dates: start: 20150114, end: 20150123
  3. IBUPROFEN. [Concomitant]
     Active Substance: IBUPROFEN
     Indication: BACK PAIN
  4. GILENYA [Suspect]
     Active Substance: FINGOLIMOD HYDROCHLORIDE
     Indication: MULTIPLE SCLEROSIS
     Dosage: QD
     Route: 048
  5. CEFDINIR. [Concomitant]
     Active Substance: CEFDINIR
     Indication: PROPHYLAXIS URINARY TRACT INFECTION
     Dosage: UNK
     Route: 065
     Dates: start: 20150115, end: 20150121
  6. BENZONATATE. [Concomitant]
     Active Substance: BENZONATATE
     Indication: COUGH
     Dosage: 100 MG, PRN
     Route: 065
     Dates: start: 20150728

REACTIONS (27)
  - Benign prostatic hyperplasia [Not Recovered/Not Resolved]
  - Haemangioma [Not Recovered/Not Resolved]
  - Muscle spasticity [Not Recovered/Not Resolved]
  - Musculoskeletal pain [Recovered/Resolved]
  - Erythema [Recovered/Resolved]
  - Dizziness [Recovered/Resolved]
  - Anxiety [Unknown]
  - Lentigo [Not Recovered/Not Resolved]
  - Seborrhoeic keratosis [Not Recovered/Not Resolved]
  - Syncope [Recovered/Resolved]
  - Pruritus [Recovered/Resolved]
  - Fall [Recovered/Resolved]
  - Nausea [Recovered/Resolved]
  - Benign neoplasm of skin [Not Recovered/Not Resolved]
  - Abdominal discomfort [Recovered/Resolved]
  - Urethritis [Recovered/Resolved]
  - Weight decreased [Recovered/Resolved]
  - Melanocytic naevus [Not Recovered/Not Resolved]
  - Headache [Recovered/Resolved]
  - Back pain [Not Recovered/Not Resolved]
  - Hemiparesis [Not Recovered/Not Resolved]
  - White blood cell count increased [Unknown]
  - Actinic keratosis [Not Recovered/Not Resolved]
  - Urinary retention [Recovered/Resolved]
  - Gait disturbance [Recovered/Resolved]
  - Constipation [Unknown]
  - Fall [Recovered/Resolved]

NARRATIVE: CASE EVENT DATE: 20140717
